FAERS Safety Report 6376548-X (Version None)
Quarter: 2009Q3

REPORT INFORMATION
  Report Type: 
  Country: None (occurrence: None)
  Receive Date: 20090925
  Receipt Date: 20090915
  Transmission Date: 20100115
  Serious: Yes (Life-Threatening, Hospitalization)
  Sender: FDA-Public Use
  Company Number: FR-PFIZER INC-2009268631

PATIENT
  Age: 62 Year

DRUGS (5)
  1. TRIFLUCAN [Suspect]
     Dosage: 200 MG, 2X/DAY
     Route: 048
     Dates: start: 20090710, end: 20090712
  2. VESANOID [Suspect]
     Indication: ACUTE MYELOID LEUKAEMIA
     Dosage: UNK MG, 2X/DAY
     Route: 048
     Dates: start: 20090710, end: 20090719
  3. CYTARABINE [Concomitant]
     Indication: ACUTE MYELOID LEUKAEMIA
     Dosage: 200 MG/M2, 1X/DAY
     Dates: start: 20090710, end: 20090716
  4. IDARUBICIN [Concomitant]
     Indication: ACUTE MYELOID LEUKAEMIA
     Dosage: 12 MG/M2, ALTERNATE DAY D1, D3, D5
     Dates: start: 20090710, end: 20090714
  5. DEXAMETHASONE [Concomitant]
     Indication: ACUTE MYELOID LEUKAEMIA
     Dosage: 10 MG, 2X/DAY
     Route: 042
     Dates: start: 20090710, end: 20090712

REACTIONS (1)
  - SINUS BRADYCARDIA [None]
